FAERS Safety Report 4284631-8 (Version None)
Quarter: 2004Q1

REPORT INFORMATION
  Report Type: 
  Country: None (occurrence: None)
  Receive Date: 20040202
  Receipt Date: 20040202
  Transmission Date: 20041129
  Serious: Yes (Death)
  Sender: FDA-Public Use
  Company Number: None

PATIENT
  Age: 47 Year
  Sex: Female
  Weight: 61.2356 kg

DRUGS (6)
  1. CISPLATIN [Suspect]
     Indication: LUNG CANCER METASTATIC
     Dosage: 80 MG /DAY EVERY 4 WE IV
     Route: 042
     Dates: start: 20031117, end: 20031222
  2. CISPLATIN [Suspect]
     Indication: NON-SMALL CELL LUNG CANCER
     Dosage: 80 MG /DAY EVERY 4 WE IV
     Route: 042
     Dates: start: 20031117, end: 20031222
  3. ETOPOSIDE [Suspect]
     Indication: LUNG CANCER METASTATIC
     Dosage: 80 MG/5 EVERY 4 WE IV
     Route: 042
     Dates: start: 20031117, end: 20031226
  4. ETOPOSIDE [Suspect]
     Indication: NON-SMALL CELL LUNG CANCER
     Dosage: 80 MG/5 EVERY 4 WE IV
     Route: 042
     Dates: start: 20031117, end: 20031226
  5. RADIATION THERAPY [Concomitant]
  6. COUMADIN [Concomitant]

REACTIONS (5)
  - CENTRAL LINE INFECTION [None]
  - CULTURE URINE [None]
  - SEPSIS [None]
  - SPUTUM CULTURE [None]
  - STAPHYLOCOCCAL INFECTION [None]
